FAERS Safety Report 22073840 (Version 1)
Quarter: 2023Q1

REPORT INFORMATION
  Report Type: Spontaneous
  Country: GR (occurrence: GR)
  Receive Date: 20230308
  Receipt Date: 20230308
  Transmission Date: 20230418
  Serious: Yes (Other)
  Sender: FDA-Public Use
  Company Number: GR-GLAXOSMITHKLINE-GR2023GSK035690

PATIENT

DRUGS (2)
  1. ALBUTEROL [Interacting]
     Active Substance: ALBUTEROL
     Indication: Product used for unknown indication
     Dosage: UNK
  2. NORFLOXACIN [Interacting]
     Active Substance: NORFLOXACIN
     Indication: Product used for unknown indication
     Dosage: UNK

REACTIONS (2)
  - Drug interaction [Unknown]
  - Electrocardiogram QT prolonged [Unknown]
